FAERS Safety Report 20875540 (Version 1)
Quarter: 2022Q2

REPORT INFORMATION
  Report Type: Spontaneous
  Country: NL (occurrence: NL)
  Receive Date: 20220526
  Receipt Date: 20220526
  Transmission Date: 20220720
  Serious: Yes (Other)
  Sender: FDA-Public Use
  Company Number: NL-IBSA PHARMA INC.-2022IBS000160

PATIENT
  Age: 8 Year
  Sex: Female

DRUGS (1)
  1. LEVOTHYROXINE SODIUM [Suspect]
     Active Substance: LEVOTHYROXINE SODIUM
     Indication: Congenital hypothyroidism
     Dosage: UNK

REACTIONS (2)
  - Ectopic thyroid [Unknown]
  - Blood thyroid stimulating hormone increased [Unknown]
